FAERS Safety Report 10192097 (Version 1)
Quarter: 2014Q2

REPORT INFORMATION
  Report Type: Spontaneous
  Country: US (occurrence: US)
  Receive Date: 20140523
  Receipt Date: 20140523
  Transmission Date: 20141212
  Serious: No
  Sender: FDA-Public Use
  Company Number: US-PFIZER INC-2014139037

PATIENT
  Age: 58 Year
  Sex: Male
  Weight: 90.7 kg

DRUGS (3)
  1. AMLODIPINE/ATORVASTATIN [Suspect]
     Indication: HYPERTENSION
     Dosage: [AMLODIPINE BESILATE (10MG), ATORVASTATIN CALCIUM (10MG)], DAILY
     Dates: start: 200707
  2. AMLODIPINE/ATORVASTATIN [Suspect]
     Indication: BLOOD CHOLESTEROL INCREASED
     Dosage: [AMLODIPINE BESILATE (5MG), ATORVASTATIN CALCIUM (10MG)], DAILY
  3. BENICAR HCT [Concomitant]
     Dosage: [HYDROCHLOROTHIAZIDE 12.5MG, OLMESARTAN MEDOXOMIL 40MG], DAILY

REACTIONS (2)
  - Hypotension [Not Recovered/Not Resolved]
  - Dizziness [Not Recovered/Not Resolved]
